FAERS Safety Report 6122033-X (Version None)
Quarter: 2009Q1

REPORT INFORMATION
  Report Type: 
  Country: None (occurrence: None)
  Receive Date: 20090316
  Receipt Date: 20090226
  Transmission Date: 20090719
  Serious: Yes (Hospitalization)
  Sender: FDA-Public Use
  Company Number: 000433

PATIENT
  Age: 79 Year
  Sex: Male

DRUGS (6)
  1. ROTIGOTINE (ROTIGOTINE) [Suspect]
     Indication: RESTLESS LEGS SYNDROME
     Dosage: 9 MG QD TRANSDERMAL
     Route: 062
     Dates: start: 20040211
  2. RAMIPRIL [Concomitant]
  3. PRAMIPEXOLE DIHYDROCHLORIDE [Concomitant]
  4. TILIDIN (VALORON N) [Concomitant]
  5. AMILORETIC (AMILORIDE W/HYDROCHLOROTHIAZIDE) [Concomitant]
  6. ENALAPRIL MALEATE [Concomitant]

REACTIONS (5)
  - FACIAL PARESIS [None]
  - POST PROCEDURAL COMPLICATION [None]
  - POST PROCEDURAL HAEMORRHAGE [None]
  - SALIVARY GLAND ADENOMA [None]
  - SURGICAL PROCEDURE REPEATED [None]
